FAERS Safety Report 26065122 (Version 1)
Quarter: 2025Q4

REPORT INFORMATION
  Report Type: Spontaneous
  Country: US (occurrence: None)
  Receive Date: 20251118
  Receipt Date: 20251118
  Transmission Date: 20260117
  Serious: Yes (unspecified)
  Sender: FDA-CTU
  Company Number: None

PATIENT
  Age: 36 Year
  Sex: Female

DRUGS (2)
  1. STEM CELL, EXOSOME, OR GROWTH FACTOR DERIVED UNAPPROVED PRODUCTS [Suspect]
     Active Substance: STEM CELL, EXOSOME, OR GROWTH FACTOR DERIVED UNAPPROVED PRODUCTS
  2. HYALURONIC ACID [Suspect]
     Active Substance: HYALURONIC ACID

REACTIONS (3)
  - Eye swelling [None]
  - Eyelid thickening [None]
  - Product use issue [None]

NARRATIVE: CASE EVENT DATE: 20250324
